FAERS Safety Report 15288506 (Version 1)
Quarter: 2018Q3

REPORT INFORMATION
  Report Type: Spontaneous
  Country: US (occurrence: US)
  Receive Date: 20180817
  Receipt Date: 20180817
  Transmission Date: 20181010
  Serious: Yes (Other)
  Sender: FDA-Public Use
  Company Number: US-STRIDES ARCOLAB LIMITED-2018SP005311

PATIENT

DRUGS (9)
  1. HYDROXYCHLOROQUINE [Suspect]
     Active Substance: HYDROXYCHLOROQUINE
     Indication: EOSINOPHILIC FASCIITIS
     Dosage: UNK
     Route: 065
  2. CYTOXAN LYOPHILIZED [Suspect]
     Active Substance: CYCLOPHOSPHAMIDE
     Dosage: UNK
     Route: 042
  3. TACROLIMUS. [Suspect]
     Active Substance: TACROLIMUS
     Indication: EOSINOPHILIC FASCIITIS
     Dosage: UNK
     Route: 065
  4. METHOTREXATE. [Suspect]
     Active Substance: METHOTREXATE
     Indication: EOSINOPHILIC FASCIITIS
     Dosage: UNK
     Route: 065
  5. CYTOXAN LYOPHILIZED [Suspect]
     Active Substance: CYCLOPHOSPHAMIDE
     Indication: OSTEOMYELITIS CHRONIC
     Dosage: UNK
     Route: 042
  6. ETANERCEPT [Suspect]
     Active Substance: ETANERCEPT
     Indication: EOSINOPHILIC FASCIITIS
     Dosage: UNK
     Route: 065
  7. ENBREL [Suspect]
     Active Substance: ETANERCEPT
     Indication: EOSINOPHILIC FASCIITIS
     Dosage: UNK
     Route: 065
  8. DAPSONE. [Suspect]
     Active Substance: DAPSONE
     Indication: EOSINOPHILIC FASCIITIS
     Dosage: UNK
     Route: 065
  9. REMICADE [Suspect]
     Active Substance: INFLIXIMAB
     Indication: EOSINOPHILIC FASCIITIS
     Dosage: UNK
     Route: 065

REACTIONS (6)
  - Osteomyelitis chronic [Recovered/Resolved]
  - Tenderness [Recovered/Resolved]
  - Oedema peripheral [Recovered/Resolved]
  - Skin hyperpigmentation [Recovered/Resolved]
  - Helicobacter infection [Recovered/Resolved]
  - Ulcer [Recovered/Resolved]
